FAERS Safety Report 4309700-5 (Version None)
Quarter: 2004Q1

REPORT INFORMATION
  Report Type: 
  Country: None (occurrence: None)
  Receive Date: 20040301
  Receipt Date: 20040219
  Transmission Date: 20041129
  Serious: Yes (Hospitalization)
  Sender: FDA-Public Use
  Company Number: MK200402-0202-1

PATIENT
  Age: 22 Year
  Sex: Male

DRUGS (1)
  1. METHYLPHENIDATE HCL [Suspect]
     Dosage: 10 MG, BID
     Dates: start: 20040211, end: 20040218

REACTIONS (4)
  - NAUSEA [None]
  - PARAESTHESIA [None]
  - PYREXIA [None]
  - RASH [None]
